FAERS Safety Report 19885928 (Version 1)
Quarter: 2021Q3

REPORT INFORMATION
  Report Type: Spontaneous
  Country: FR (occurrence: FR)
  Receive Date: 20210927
  Receipt Date: 20210927
  Transmission Date: 20211014
  Serious: Yes (Death)
  Sender: FDA-Public Use
  Company Number: FR-ACCORD-239870

PATIENT
  Age: 85 Year
  Sex: Female
  Weight: 76 kg

DRUGS (14)
  1. AMLODIPINE [Concomitant]
     Active Substance: AMLODIPINE BESYLATE
     Dates: start: 20210816, end: 20210820
  2. ENOXAPARIN [Concomitant]
     Active Substance: ENOXAPARIN
     Dates: start: 20210811, end: 20210823
  3. PHLOROGLUCINOL [Concomitant]
     Active Substance: PHLOROGLUCINOL
  4. CLOXACILLIN [Concomitant]
     Active Substance: CLOXACILLIN
     Indication: INFECTION
     Route: 042
     Dates: start: 20210820, end: 20210822
  5. COLECALCIFEROL [Concomitant]
     Active Substance: CHOLECALCIFEROL
  6. RIFAMPICIN [Concomitant]
     Active Substance: RIFAMPIN
     Dates: start: 20210820, end: 20210823
  7. LEVOFLOXACIN. [Concomitant]
     Active Substance: LEVOFLOXACIN
     Indication: INFECTION
     Route: 048
     Dates: start: 20210817, end: 20210820
  8. SERTRALINE [Concomitant]
     Active Substance: SERTRALINE HYDROCHLORIDE
     Dates: start: 20210819
  9. SKENAN [Concomitant]
     Active Substance: MORPHINE SULFATE
     Dosage: 10 MG, MICROGRANULES PROLONGED?RELEASE CAPSULE
     Dates: start: 20210811, end: 20210823
  10. DAPTOMYCIN. [Suspect]
     Active Substance: DAPTOMYCIN
     Indication: INFECTION
     Route: 042
     Dates: start: 20210811, end: 20210820
  11. FUROSEMIDE. [Concomitant]
     Active Substance: FUROSEMIDE
     Dates: start: 20210824
  12. HEPARIN [Concomitant]
     Active Substance: HEPARIN SODIUM
     Dates: start: 20210823
  13. MELATONIN [Concomitant]
     Active Substance: MELATONIN
     Dates: start: 20210819
  14. TAZOCILLINE [Concomitant]
     Active Substance: PIPERACILLIN SODIUM\TAZOBACTAM SODIUM
     Indication: INFECTION
     Dosage: PIPERACILLIN 4GX3 / D TAZOBACTAM 0.5GX3 / D
     Route: 042
     Dates: start: 20210811, end: 20210820

REACTIONS (1)
  - Rhabdomyolysis [Fatal]

NARRATIVE: CASE EVENT DATE: 20210820
